FAERS Safety Report 19837333 (Version 1)
Quarter: 2021Q3

REPORT INFORMATION
  Report Type: Spontaneous
  Country: GB (occurrence: GB)
  Receive Date: 20210914
  Receipt Date: 20210914
  Transmission Date: 20211014
  Serious: Yes (Other)
  Sender: FDA-Public Use
  Company Number: GB-BAUSCH-BL-2021-031515

PATIENT
  Sex: Female

DRUGS (1)
  1. MOVIPREP [Suspect]
     Active Substance: ASCORBIC ACID\POLYETHYLENE GLYCOL 3350\POTASSIUM CHLORIDE\SODIUM ASCORBATE\SODIUM CHLORIDE\SODIUM SULFATE
     Indication: BOWEL PREPARATION
     Route: 048

REACTIONS (10)
  - Dysgeusia [Unknown]
  - Retching [Unknown]
  - Patient dissatisfaction with treatment [Unknown]
  - Proctalgia [Unknown]
  - Tremor [Unknown]
  - Eructation [Unknown]
  - Anorectal discomfort [Unknown]
  - Diarrhoea [Unknown]
  - Haemorrhage [Unknown]
  - Nausea [Unknown]
